FAERS Safety Report 12611273 (Version 1)
Quarter: 2016Q3

REPORT INFORMATION
  Report Type: Spontaneous
  Country: US (occurrence: US)
  Receive Date: 20160801
  Receipt Date: 20160801
  Transmission Date: 20161109
  Serious: Yes (Other)
  Sender: FDA-Public Use
  Company Number: US-GUERBET LLC-1055738

PATIENT
  Age: 23 Year
  Sex: Female

DRUGS (1)
  1. DOTAREM [Suspect]
     Active Substance: GADOTERATE MEGLUMINE
     Indication: NUCLEAR MAGNETIC RESONANCE IMAGING
     Dates: start: 20160718, end: 20160718

REACTIONS (8)
  - Anaphylactic reaction [Unknown]
  - Headache [Unknown]
  - Dyspnoea [Unknown]
  - Raynaud^s phenomenon [Unknown]
  - Dizziness [Unknown]
  - Chest discomfort [Unknown]
  - Anxiety [Unknown]
  - Hyperventilation [Unknown]

NARRATIVE: CASE EVENT DATE: 20160718
